FAERS Safety Report 11504381 (Version 1)
Quarter: 2015Q3

REPORT INFORMATION
  Report Type: Spontaneous
  Country: GB (occurrence: GB)
  Receive Date: 20150915
  Receipt Date: 20150915
  Transmission Date: 20151125
  Serious: Yes (Other)
  Sender: FDA-Public Use
  Company Number: GB-SUN PHARMACEUTICAL INDUSTRIES LTD-2015RR-101964

PATIENT

DRUGS (2)
  1. DIHYDROCODEINE [Suspect]
     Active Substance: DIHYDROCODEINE
     Indication: PRODUCT USED FOR UNKNOWN INDICATION
     Dosage: 600 TABLETS/WEEK
     Route: 065
  2. DIAZEPAM. [Suspect]
     Active Substance: DIAZEPAM
     Indication: DEPRESSED MOOD
     Dosage: UNK
     Route: 065

REACTIONS (3)
  - Drug abuse [Recovering/Resolving]
  - Intentional product misuse [Unknown]
  - Drug dependence [Recovering/Resolving]

NARRATIVE: CASE EVENT DATE: 2012
